FAERS Safety Report 5252603-2 (Version None)
Quarter: 2007Q1

REPORT INFORMATION
  Report Type: 
  Country: None (occurrence: None)
  Receive Date: 20070227
  Receipt Date: 20070227
  Transmission Date: 20070707
  Serious: Yes (Life-Threatening)
  Sender: FDA-Public Use
  Company Number: None

PATIENT
  Age: 39 Year
  Sex: Male
  Weight: 112.4921 kg

DRUGS (3)
  1. BENAZEPRIL HYDROCHLORIDE [Suspect]
     Indication: AORTIC DISSECTION
  2. FELODIPINE [Suspect]
  3. LABETALOL HCL [Suspect]

REACTIONS (7)
  - AORTIC DISSECTION [None]
  - BLOOD PRESSURE DECREASED [None]
  - BLOOD PRESSURE SYSTOLIC INCREASED [None]
  - CARDIO-RESPIRATORY ARREST [None]
  - DRUG INEFFECTIVE [None]
  - LOSS OF CONSCIOUSNESS [None]
  - PULSE ABSENT [None]
